FAERS Safety Report 21226669 (Version 1)
Quarter: 2022Q3

REPORT INFORMATION
  Report Type: Spontaneous
  Country: US (occurrence: US)
  Receive Date: 20220818
  Receipt Date: 20220818
  Transmission Date: 20221027
  Serious: No
  Sender: FDA-Public Use
  Company Number: US-CIPLA LTD.-2021US07925

PATIENT
  Sex: Female

DRUGS (10)
  1. DICLOFENAC [Suspect]
     Active Substance: DICLOFENAC
     Indication: Arthralgia
     Dosage: UNK, 5 YEARS AGO
     Route: 065
  2. DICLOFENAC [Suspect]
     Active Substance: DICLOFENAC
     Indication: Arthritis
     Dosage: UNK, 6 MONTHS AGO
     Route: 065
  3. DICLOFENAC [Suspect]
     Active Substance: DICLOFENAC
     Indication: Spondylitis
     Dosage: UNK
     Route: 065
     Dates: start: 20211201
  4. ACETAMINOPHEN [Concomitant]
     Active Substance: ACETAMINOPHEN
     Indication: Pain
     Dosage: UNK
     Route: 065
  5. MORPHINE [Concomitant]
     Active Substance: MORPHINE
     Indication: Pain
     Dosage: UNK
     Route: 065
  6. CLONAZEPAM [Concomitant]
     Active Substance: CLONAZEPAM
     Indication: Anxiety
     Dosage: UNK
     Route: 065
  7. BUPROPION [Concomitant]
     Active Substance: BUPROPION
     Indication: Depression
     Dosage: UNK
     Route: 065
  8. CORTISONE [Concomitant]
     Active Substance: CORTISONE
     Indication: Back pain
     Dosage: UNK, LUMBAR SUB JOINTS AND SACRAL JOINTS I.E., 9 INJECTIONS EVERY 4 MONTHS.
     Route: 065
  9. CORTISONE [Concomitant]
     Active Substance: CORTISONE
     Indication: Multiple sclerosis
  10. CORTISONE [Concomitant]
     Active Substance: CORTISONE
     Indication: Sciatica

REACTIONS (3)
  - Off label use [Not Recovered/Not Resolved]
  - Product use in unapproved indication [Not Recovered/Not Resolved]
  - Intentional product use issue [Unknown]
